FAERS Safety Report 20132704 (Version 2)
Quarter: 2022Q2

REPORT INFORMATION
  Report Type: Spontaneous
  Country: US (occurrence: US)
  Receive Date: 20211130
  Receipt Date: 20220524
  Transmission Date: 20220721
  Serious: Yes (Other)
  Sender: FDA-Public Use
  Company Number: US-GILEAD-2021-0557347

PATIENT
  Age: 43 Year
  Sex: Male
  Weight: 54.422 kg

DRUGS (16)
  1. TRUVADA [Suspect]
     Active Substance: EMTRICITABINE\TENOFOVIR DISOPROXIL FUMARATE
     Indication: HIV infection
     Dosage: UNK
     Route: 048
     Dates: start: 200510, end: 201706
  2. VIREAD [Suspect]
     Active Substance: TENOFOVIR DISOPROXIL FUMARATE
     Indication: HIV infection
     Dosage: UNK
     Route: 048
     Dates: start: 200404, end: 200510
  3. DESCOVY [Concomitant]
     Active Substance: EMTRICITABINE\TENOFOVIR ALAFENAMIDE FUMARATE
  4. EPIVIR [Concomitant]
     Active Substance: LAMIVUDINE
  5. ISENTRESS [Concomitant]
     Active Substance: RALTEGRAVIR POTASSIUM
  6. LEXIVA [Concomitant]
     Active Substance: FOSAMPRENAVIR CALCIUM
  7. NORVIR [Concomitant]
     Active Substance: RITONAVIR
  8. RETROVIR [Concomitant]
     Active Substance: ZIDOVUDINE
  9. SUSTIVA [Concomitant]
     Active Substance: EFAVIRENZ
  10. TIVICAY [Concomitant]
     Active Substance: DOLUTEGRAVIR SODIUM
  11. VIDEX [Concomitant]
     Active Substance: DIDANOSINE
  12. VIDEX EC [Concomitant]
     Active Substance: DIDANOSINE
  13. ZERIT [Concomitant]
     Active Substance: STAVUDINE
  14. VITAMIN D NOS [Concomitant]
     Active Substance: VITAMIN D NOS
  15. GABAPENTIN [Concomitant]
     Active Substance: GABAPENTIN
  16. CYCLOBENZAPRINE [Concomitant]
     Active Substance: CYCLOBENZAPRINE

REACTIONS (12)
  - Osteoporosis [Not Recovered/Not Resolved]
  - Pelvic fracture [Unknown]
  - Multiple fractures [Not Recovered/Not Resolved]
  - Bone density decreased [Unknown]
  - Pain [Not Recovered/Not Resolved]
  - Emotional distress [Not Recovered/Not Resolved]
  - Anxiety [Not Recovered/Not Resolved]
  - Anhedonia [Not Recovered/Not Resolved]
  - Osteopenia [Not Recovered/Not Resolved]
  - Foot fracture [Unknown]
  - Gait disturbance [Unknown]
  - Asthenia [Unknown]

NARRATIVE: CASE EVENT DATE: 20070901
